FAERS Safety Report 21967042 (Version 1)
Quarter: 2023Q1

REPORT INFORMATION
  Report Type: Spontaneous
  Country: US (occurrence: None)
  Receive Date: 20230206
  Receipt Date: 20230206
  Transmission Date: 20230417
  Serious: Yes (Other)
  Sender: FDA-Public Use
  Company Number: None

PATIENT
  Age: 55 Year
  Sex: Female
  Weight: 59.85 kg

DRUGS (11)
  1. INGREZZA [Suspect]
     Active Substance: VALBENAZINE
     Indication: Tardive dyskinesia
     Dosage: FREQUENCY : AT BEDTIME;?
     Route: 048
  2. PROPRANOLOL [Concomitant]
     Active Substance: PROPRANOLOL HYDROCHLORIDE
  3. MIRTAZAPINE [Concomitant]
     Active Substance: MIRTAZAPINE
  4. SOLIFENACIN [Concomitant]
     Active Substance: SOLIFENACIN
  5. GABAPENTIN [Concomitant]
     Active Substance: GABAPENTIN
  6. MAGNESIUM [Concomitant]
     Active Substance: MAGNESIUM
  7. GINKGO [Concomitant]
     Active Substance: GINKGO
  8. VITAMIN E [Concomitant]
     Active Substance: .ALPHA.-TOCOPHEROL
  9. VITAMIN C [Concomitant]
     Active Substance: ASCORBIC ACID
  10. PYRIDOXINE [Concomitant]
     Active Substance: PYRIDOXINE
  11. VITAMIN B12 [Concomitant]
     Active Substance: CYANOCOBALAMIN

REACTIONS (8)
  - Depression [None]
  - Akathisia [None]
  - Vision blurred [None]
  - Decreased appetite [None]
  - Dyspnoea [None]
  - Hypopnoea [None]
  - Tardive dyskinesia [None]
  - Condition aggravated [None]

NARRATIVE: CASE EVENT DATE: 20220615
